FAERS Safety Report 7474650-2 (Version None)
Quarter: 2011Q2

REPORT INFORMATION
  Report Type: 
  Country: None (occurrence: None)
  Receive Date: 20110512
  Receipt Date: 20110504
  Transmission Date: 20111010
  Serious: Yes (Hospitalization, Other)
  Sender: FDA-Public Use
  Company Number: US-JNJFOC-20110107749

PATIENT
  Sex: Male

DRUGS (3)
  1. PREDNISONE [Suspect]
     Indication: ASTHMA
     Route: 065
  2. LEVAQUIN [Suspect]
     Indication: UPPER RESPIRATORY TRACT INFECTION
     Route: 048
  3. ZOCOR [Concomitant]
     Indication: BLOOD CHOLESTEROL DECREASED
     Route: 065

REACTIONS (2)
  - PULMONARY EMBOLISM [None]
  - TENDON RUPTURE [None]
